FAERS Safety Report 25325401 (Version 1)
Quarter: 2025Q2

REPORT INFORMATION
  Report Type: Spontaneous
  Country: CN (occurrence: CN)
  Receive Date: 20250516
  Receipt Date: 20250516
  Transmission Date: 20250716
  Serious: Yes (Hospitalization)
  Sender: BEIGENE
  Company Number: CN-BEIGENE-BGN-2025-007589

PATIENT
  Age: 60 Year
  Weight: 57 kg

DRUGS (32)
  1. TISLELIZUMAB [Suspect]
     Active Substance: TISLELIZUMAB
     Indication: Small cell lung cancer
  2. TISLELIZUMAB [Suspect]
     Active Substance: TISLELIZUMAB
  3. TISLELIZUMAB [Suspect]
     Active Substance: TISLELIZUMAB
  4. TISLELIZUMAB [Suspect]
     Active Substance: TISLELIZUMAB
  5. CISPLATIN [Suspect]
     Active Substance: CISPLATIN
     Indication: Small cell lung cancer
  6. CISPLATIN [Suspect]
     Active Substance: CISPLATIN
  7. ETOPOSIDE [Suspect]
     Active Substance: ETOPOSIDE
     Indication: Small cell lung cancer
  8. ETOPOSIDE [Suspect]
     Active Substance: ETOPOSIDE
  9. ETOPOSIDE [Suspect]
     Active Substance: ETOPOSIDE
  10. ETOPOSIDE [Suspect]
     Active Substance: ETOPOSIDE
  11. SODIUM CHLORIDE [Suspect]
     Active Substance: SODIUM CHLORIDE
     Indication: Vehicle solution use
  12. SODIUM CHLORIDE [Suspect]
     Active Substance: SODIUM CHLORIDE
  13. SODIUM CHLORIDE [Suspect]
     Active Substance: SODIUM CHLORIDE
  14. SODIUM CHLORIDE [Suspect]
     Active Substance: SODIUM CHLORIDE
  15. SODIUM CHLORIDE [Suspect]
     Active Substance: SODIUM CHLORIDE
  16. SODIUM CHLORIDE [Suspect]
     Active Substance: SODIUM CHLORIDE
  17. SODIUM CHLORIDE [Suspect]
     Active Substance: SODIUM CHLORIDE
  18. SODIUM CHLORIDE [Suspect]
     Active Substance: SODIUM CHLORIDE
  19. SODIUM CHLORIDE [Suspect]
     Active Substance: SODIUM CHLORIDE
  20. SODIUM CHLORIDE [Suspect]
     Active Substance: SODIUM CHLORIDE
  21. SODIUM CHLORIDE [Suspect]
     Active Substance: SODIUM CHLORIDE
  22. SODIUM CHLORIDE [Suspect]
     Active Substance: SODIUM CHLORIDE
  23. DEXAMETHASONE SODIUM PHOSPHATE [Concomitant]
     Active Substance: DEXAMETHASONE SODIUM PHOSPHATE
     Indication: Antiemetic supportive care
     Dosage: 20 MILLIGRAM, QD
     Route: 041
  24. DEXAMETHASONE SODIUM PHOSPHATE [Concomitant]
     Active Substance: DEXAMETHASONE SODIUM PHOSPHATE
     Dosage: 20 MILLIGRAM, QD
  25. Netupitant and palonosetron hydrochloride [Concomitant]
     Indication: Antiemetic supportive care
     Dosage: 0.3 GRAM, QD
     Route: 048
  26. Netupitant and palonosetron hydrochloride [Concomitant]
     Dosage: 0.3 GRAM, QD
  27. TROPISETRON HYDROCHLORIDE [Concomitant]
     Active Substance: TROPISETRON HYDROCHLORIDE
     Indication: Antiemetic supportive care
     Dosage: 5 MILLIGRAM, QD
     Route: 041
  28. TROPISETRON HYDROCHLORIDE [Concomitant]
     Active Substance: TROPISETRON HYDROCHLORIDE
     Dosage: 5 MILLIGRAM, QD
  29. METOCLOPRAMIDE HYDROCHLORIDE [Concomitant]
     Active Substance: METOCLOPRAMIDE HYDROCHLORIDE
     Indication: Antiemetic supportive care
     Dosage: 10 MILLIGRAM, QD
     Route: 041
  30. METOCLOPRAMIDE HYDROCHLORIDE [Concomitant]
     Active Substance: METOCLOPRAMIDE HYDROCHLORIDE
     Dosage: 10 MILLIGRAM, QD
  31. DEXTROSE [Concomitant]
     Active Substance: DEXTROSE MONOHYDRATE
     Indication: Vehicle solution use
     Dosage: 250 MILLILITER, QD
     Route: 041
  32. DEXTROSE [Concomitant]
     Active Substance: DEXTROSE MONOHYDRATE
     Dosage: 250 MILLILITER, QD

REACTIONS (1)
  - Myelosuppression [Recovering/Resolving]
